FAERS Safety Report 16566632 (Version 1)
Quarter: 2019Q3

REPORT INFORMATION
  Report Type: Spontaneous
  Country: DE (occurrence: DE)
  Receive Date: 20190712
  Receipt Date: 20190712
  Transmission Date: 20191004
  Serious: Yes (Hospitalization)
  Sender: FDA-Public Use
  Company Number: DE-TEVA-2019-DE-1075354

PATIENT
  Age: 68 Year
  Sex: Male
  Weight: 78 kg

DRUGS (23)
  1. KORTISONSALBE [Concomitant]
     Dosage: NEED, OINTMENT
     Route: 062
  2. AMITRIPTYLIN [Concomitant]
     Active Substance: AMITRIPTYLINE
     Dosage: 25 MG, 0-0-1-0, TABLETS
     Route: 048
  3. D3-VICOTRAT I.M. [Concomitant]
     Dosage: SCHEME, SOLUTION FOR INJECTION/INFUSION
     Route: 030
  4. ZINC. [Concomitant]
     Active Substance: ZINC
     Dosage: 1-0-0-0, CAPSULES
     Route: 048
  5. OPTIFIBRE [Concomitant]
     Dosage: 1 MEASURING SPOON, 1-0-0-0, POWDER
     Route: 048
  6. CIPROFLOXACIN. [Concomitant]
     Active Substance: CIPROFLOXACIN
     Dosage: 250 MG, SCHEME, TABLETS
     Route: 048
  7. RAMIPRIL COMP [Concomitant]
     Active Substance: HYDROCHLOROTHIAZIDE\RAMIPRIL
     Dosage: 5|25 MG, 1-0-0-0, TABLETS
     Route: 048
  8. MAGNESIUM DIASPORAL [Concomitant]
     Active Substance: MAGNESIUM
     Dosage: 2 MMOL, SCHEME, SOLUTION FOR INJECTION/INFUSION
     Route: 051
  9. LAMIVUDIN [Concomitant]
     Active Substance: LAMIVUDINE
     Dosage: 100 MG, 0-1-0-0, TABLET
     Route: 048
  10. STEROFUNDIN ISO [Concomitant]
     Dosage: 6.8|0.3|0.37|0.2|3.27|0.67 G / DAY, SCHEDULE, SOLUTION FOR INJECTION/INFUSION
     Route: 051
  11. ENTYVIO [Suspect]
     Active Substance: VEDOLIZUMAB
     Dosage: SCHEME, SOLUTION FOR INJECTION/INFUSION
     Route: 042
  12. OSTEOTRIOL 0,25MIKROGRAMM [Concomitant]
     Dosage: 0.25 ?G, 0-1-0-0, TABLETS
     Route: 048
  13. OPIUM TINKTUR [Concomitant]
     Dosage: 30 GTT, 1-0-0-0, DROP
     Route: 048
  14. PREDNISOLONE. [Suspect]
     Active Substance: PREDNISOLONE
     Dosage: 5 MG, 1-0-0-0, TABLETTEN
     Route: 048
  15. DEKRISTOL 20000I.E. [Concomitant]
     Dosage: 20000 IE, 0-1-0-0, CAPSULES
     Route: 048
  16. BISOPROLOL [Concomitant]
     Active Substance: BISOPROLOL
     Dosage: 5 MG, 0-0-1-0, TABLETS
     Route: 048
  17. PANTOPRAZOL [Concomitant]
     Active Substance: PANTOPRAZOLE SODIUM
     Dosage: 40 MG, 1-0-1-0, TABLET
     Route: 048
  18. BICANORM [Concomitant]
     Active Substance: SODIUM BICARBONATE
     Dosage: 1 G, 1-1-1-1, TABLETS
     Route: 048
  19. ADENURIC 80MG [Concomitant]
     Dosage: 80 MG, 1-0-0-0, TABLETS
     Route: 048
  20. VERSATIS 5% [Concomitant]
     Dosage: 700 MG, SCHEME, PAVING TRANSDERMAL
     Route: 062
  21. CALCITRAT [Concomitant]
     Dosage: 1-1-1-0, TABLET
     Route: 048
  22. MAGNETRANS FORTE 150MG [Concomitant]
     Dosage: 150 MG, 1-0-0-0, CAPSULES
     Route: 048
  23. PLASTULEN EISEN 55MG [Concomitant]
     Dosage: 55 MG, 1-0-0-0, CAPSULES
     Route: 048

REACTIONS (2)
  - Pyrexia [Unknown]
  - General physical health deterioration [Unknown]
